FAERS Safety Report 4650399-6 (Version None)
Quarter: 2005Q2

REPORT INFORMATION
  Report Type: 
  Country: None (occurrence: None)
  Receive Date: 20050429
  Receipt Date: 20050412
  Transmission Date: 20051028
  Serious: No
  Sender: FDA-Public Use
  Company Number: 2005UW05632

PATIENT
  Age: 66 Year
  Sex: Male

DRUGS (5)
  1. ZOLADEX [Suspect]
     Indication: PROSTATE CANCER
  2. EMCYT [Suspect]
     Indication: PROSTATE CANCER
     Dosage: 280 MG PO
     Route: 048
     Dates: start: 20010718, end: 20011030
  3. PACLITAXEL [Suspect]
     Indication: PROSTATE CANCER
     Dates: start: 20010718, end: 20011030
  4. ETOPOSIDE [Suspect]
     Indication: PROSTATE CANCER
     Dates: start: 20010718, end: 20011030
  5. PROCRIT [Concomitant]

REACTIONS (1)
  - MYELODYSPLASTIC SYNDROME [None]
